FAERS Safety Report 8422551-5 (Version None)
Quarter: 2012Q2

REPORT INFORMATION
  Report Type: 
  Country: None (occurrence: None)
  Receive Date: 20120608
  Receipt Date: 20120530
  Transmission Date: 20120825
  Serious: Yes (Other)
  Sender: FDA-Public Use
  Company Number: US-VERTEX PHARMACEUTICALS INC.-AE-2012-006639

PATIENT
  Sex: Female

DRUGS (3)
  1. POLYETHYLENE GLYCOL [Concomitant]
     Indication: HEPATITIS C
     Dates: start: 20120127, end: 20120420
  2. RIBAVIRIN [Concomitant]
     Indication: HEPATITIS C
     Dates: start: 20120127, end: 20120420
  3. INCIVEK [Suspect]
     Indication: HEPATITIS C
     Route: 048
     Dates: start: 20120127, end: 20120413

REACTIONS (1)
  - EXFOLIATIVE RASH [None]
